FAERS Safety Report 4392056-X (Version None)
Quarter: 2004Q3

REPORT INFORMATION
  Report Type: 
  Country: None (occurrence: None)
  Receive Date: 20040708
  Receipt Date: 20040524
  Transmission Date: 20050211
  Serious: Yes (Other)
  Sender: FDA-Public Use
  Company Number: PHNU2004DE01925

PATIENT
  Age: 62 Year
  Sex: Female
  Weight: 65 kg

DRUGS (9)
  1. VOLTAREN [Suspect]
     Indication: OSTEOARTHRITIS
     Dosage: 1 DF, QD
     Route: 048
     Dates: start: 20040401, end: 20040516
  2. VOLTAREN [Suspect]
     Dosage: 1 DF, PRN
     Route: 048
     Dates: end: 20040401
  3. VOLTAREN [Suspect]
     Dosage: 2 DF, ONCE/SINGLE
     Dates: start: 20040514, end: 20040514
  4. DICLOFENAC SODIUM [Suspect]
     Indication: INTERVERTEBRAL DISC PROTRUSION
     Dosage: 1 DF, PRN
     Route: 048
     Dates: end: 20040401
  5. DICLOFENAC SODIUM [Suspect]
     Dates: start: 20040401, end: 20040516
  6. TENORMIN [Concomitant]
  7. DELIX [Concomitant]
  8. VOLTAREN [Suspect]
     Indication: MUSCULOSKELETAL DISCOMFORT
     Dosage: UNK, PRN
     Dates: start: 19800101, end: 19980101
  9. HORMONES [Concomitant]
     Dosage: UNK, UNK
     Dates: start: 20031101

REACTIONS (6)
  - HEADACHE [None]
  - MIGRAINE [None]
  - SCINTILLATING SCOTOMA [None]
  - VASOSPASM [None]
  - VISION BLURRED [None]
  - VISUAL DISTURBANCE [None]
